FAERS Safety Report 8231755-6 (Version None)
Quarter: 2012Q1

REPORT INFORMATION
  Report Type: 
  Country: None (occurrence: None)
  Receive Date: 20120323
  Receipt Date: 20120314
  Transmission Date: 20120608
  Serious: Yes (Hospitalization)
  Sender: FDA-Public Use
  Company Number: CL-BRISTOL-MYERS SQUIBB COMPANY-16423402

PATIENT
  Age: 36 Year
  Sex: Male

DRUGS (1)
  1. ARIPIPRAZOLE [Suspect]
     Indication: SCHIZOPHRENIA
     Dosage: CURRENT ARIPIPRAZOLE DOSE ON 13JAN2012 IN PHASE III LAST DOSE:10FEB12
     Route: 030
     Dates: start: 20101224

REACTIONS (2)
  - CHOLELITHIASIS [None]
  - BILE DUCT STONE [None]
